FAERS Safety Report 23791495 (Version 2)
Quarter: 2024Q3

REPORT INFORMATION
  Report Type: Spontaneous
  Country: US (occurrence: US)
  Receive Date: 20240429
  Receipt Date: 20240721
  Transmission Date: 20241017
  Serious: Yes (Other)
  Sender: BRISTOL MYERS SQUIBB
  Company Number: US-BRISTOL-MYERS SQUIBB COMPANY-2024-065599

PATIENT
  Age: 62 Year
  Sex: Female
  Weight: 92.08 kg

DRUGS (2)
  1. POMALYST [Suspect]
     Active Substance: POMALIDOMIDE
     Indication: Plasma cell myeloma
     Dosage: 21D ON 7D OFF
     Route: 048
     Dates: start: 20240301
  2. POMALYST [Suspect]
     Active Substance: POMALIDOMIDE
     Dosage: 21D ON 7D OFF
     Route: 048

REACTIONS (3)
  - Thrombocytopenia [Not Recovered/Not Resolved]
  - Asthenia [Unknown]
  - Fatigue [Unknown]

NARRATIVE: CASE EVENT DATE: 20240101
